FAERS Safety Report 22902372 (Version 5)
Quarter: 2023Q4

REPORT INFORMATION
  Report Type: Report from Study
  Country: GB (occurrence: GB)
  Receive Date: 20230904
  Receipt Date: 20231023
  Transmission Date: 20240110
  Serious: Yes (Life-Threatening, Hospitalization, Other)
  Sender: FDA-Public Use
  Company Number: GB-JNJFOC-20230863211

PATIENT
  Age: 77 Year
  Sex: Male
  Weight: 64.8 kg

DRUGS (17)
  1. CILTACABTAGENE AUTOLEUCEL [Suspect]
     Active Substance: CILTACABTAGENE AUTOLEUCEL
     Indication: Plasma cell myeloma
     Route: 042
     Dates: start: 20230601, end: 20230601
  2. CYCLOPHOSPHAMIDE [Concomitant]
     Active Substance: CYCLOPHOSPHAMIDE
     Indication: Plasma cell myeloma
     Route: 042
     Dates: start: 20230527, end: 20230529
  3. FLUDARABINE [Concomitant]
     Active Substance: FLUDARABINE PHOSPHATE
     Indication: Plasma cell myeloma
     Route: 042
     Dates: start: 20230527, end: 20230529
  4. BUPRENORPHINE [Concomitant]
     Active Substance: BUPRENORPHINE
     Indication: Back pain
     Route: 050
     Dates: start: 20220707
  5. ACYCLOVIR [Concomitant]
     Active Substance: ACYCLOVIR
     Indication: Antiviral prophylaxis
     Route: 048
     Dates: start: 20221017
  6. ALLOPURINOL [Concomitant]
     Active Substance: ALLOPURINOL
     Indication: Prophylaxis
     Route: 048
     Dates: start: 20221017
  7. COTRIMOXAZOLE [Concomitant]
     Active Substance: SULFAMETHOXAZOLE\TRIMETHOPRIM
     Indication: Infection prophylaxis
     Dosage: 800/160 MG
     Route: 048
     Dates: start: 20221017
  8. METOCLOPRAMIDE [Concomitant]
     Active Substance: METOCLOPRAMIDE
     Indication: Prophylaxis of nausea and vomiting
     Route: 048
     Dates: start: 20221017
  9. OMEPRAZOLE [Concomitant]
     Active Substance: OMEPRAZOLE
     Indication: Antacid therapy
     Route: 048
     Dates: start: 20220117
  10. ROSUVASTATIN [Concomitant]
     Active Substance: ROSUVASTATIN
     Indication: Hypertension
     Route: 048
     Dates: start: 20230613
  11. ASPIRIN [Concomitant]
     Active Substance: ASPIRIN
     Indication: Hypertension
     Route: 048
  12. BISOPROLOL [Concomitant]
     Active Substance: BISOPROLOL\BISOPROLOL FUMARATE
     Indication: Hypertension
     Route: 048
  13. MORPHINE [Concomitant]
     Active Substance: MORPHINE
     Indication: Back pain
     Route: 062
  14. MORPHINE SULFATE [Concomitant]
     Active Substance: MORPHINE SULFATE
     Indication: Back pain
     Dosage: 10/5 DOSAGE FORMS
     Route: 048
  15. ORAMORPH SR SUSTAINED RELEASE [Concomitant]
     Active Substance: MORPHINE SULFATE
     Indication: Back pain
     Route: 048
  16. PERINDOPRIL [Concomitant]
     Active Substance: PERINDOPRIL
     Indication: Hypertension
     Route: 048
  17. METFORMIN HYDROCHLORIDE [Concomitant]
     Active Substance: METFORMIN HYDROCHLORIDE
     Indication: Diabetes mellitus
     Route: 048

REACTIONS (2)
  - Septic shock [Recovered/Resolved]
  - Arthritis bacterial [Recovered/Resolved]

NARRATIVE: CASE EVENT DATE: 20230824
